FAERS Safety Report 6136665-6 (Version None)
Quarter: 2009Q1

REPORT INFORMATION
  Report Type: 
  Country: None (occurrence: None)
  Receive Date: 20090330
  Receipt Date: 20090323
  Transmission Date: 20090719
  Serious: Yes (Other)
  Sender: FDA-Public Use
  Company Number: B0567280A

PATIENT
  Sex: Male

DRUGS (2)
  1. FLIXONASE [Suspect]
     Route: 045
  2. RHINOCORT [Concomitant]

REACTIONS (4)
  - AGEUSIA [None]
  - ANOSMIA [None]
  - CONDITION AGGRAVATED [None]
  - DYSPNOEA [None]
